FAERS Safety Report 6568547-X (Version None)
Quarter: 2010Q1

REPORT INFORMATION
  Report Type: 
  Country: None (occurrence: None)
  Receive Date: 20100128
  Receipt Date: 20100113
  Transmission Date: 20100710
  Serious: Yes (Death, Hospitalization)
  Sender: FDA-Public Use
  Company Number: 2009AC000193

PATIENT
  Age: 79 Year
  Sex: Female

DRUGS (29)
  1. DIGOXIN [Suspect]
     Dosage: 0.125 MG; MWF; PO
     Route: 048
     Dates: start: 20060101
  2. EFFEXOR [Concomitant]
  3. REVATIO [Concomitant]
  4. PEPCID [Concomitant]
  5. ASPIRIN [Concomitant]
  6. LASIX [Concomitant]
  7. ENABLEX [Concomitant]
  8. VERSED [Concomitant]
  9. FENTANYL-100 [Concomitant]
  10. ATENOLOL [Concomitant]
  11. CRESTOR [Concomitant]
  12. ATACAND [Concomitant]
  13. ACIPHEX [Concomitant]
  14. METOCLOPRAMIDE [Concomitant]
  15. POTASSIUM [Concomitant]
  16. ENABLEX [Concomitant]
  17. AVELOX [Concomitant]
  18. EFFEXOR [Concomitant]
  19. REVATIO [Concomitant]
  20. PEPCID [Concomitant]
  21. ASPIRIN [Concomitant]
  22. LASIX [Concomitant]
  23. ENABLEX [Concomitant]
  24. HEPARIN [Concomitant]
  25. TRACLEER [Concomitant]
  26. VANCOMYCIN [Concomitant]
  27. WARFARIN SODIUM [Concomitant]
  28. ROXANOL [Concomitant]
  29. ATIVAN [Concomitant]

REACTIONS (46)
  - AMNESIA [None]
  - ASTHENIA [None]
  - ATRIOVENTRICULAR BLOCK FIRST DEGREE [None]
  - CARDIAC FAILURE [None]
  - CARDIAC FLUTTER [None]
  - CARDIAC MURMUR [None]
  - CARDIAC OUTPUT DECREASED [None]
  - CHEST DISCOMFORT [None]
  - CHEST PAIN [None]
  - COLONIC POLYP [None]
  - CONJUNCTIVITIS [None]
  - COUGH [None]
  - DEEP VEIN THROMBOSIS [None]
  - DIVERTICULUM [None]
  - DYSPNOEA [None]
  - DYSPNOEA EXERTIONAL [None]
  - ECONOMIC PROBLEM [None]
  - EMOTIONAL DISORDER [None]
  - FALL [None]
  - FAMILY STRESS [None]
  - FATIGUE [None]
  - GASTRITIS [None]
  - HEPATIC CONGESTION [None]
  - HYPOXIA [None]
  - JOINT SWELLING [None]
  - LETHARGY [None]
  - MENTAL STATUS CHANGES [None]
  - MITRAL VALVE PROLAPSE [None]
  - MULTIPLE INJURIES [None]
  - NAUSEA [None]
  - OEDEMA PERIPHERAL [None]
  - OESOPHAGITIS [None]
  - PAIN [None]
  - PNEUMONIA [None]
  - PULMONARY EMBOLISM [None]
  - PULMONARY HYPERTENSION [None]
  - RENAL FAILURE [None]
  - RIGHT VENTRICULAR FAILURE [None]
  - SEPSIS SYNDROME [None]
  - SOCIAL PROBLEM [None]
  - SYNCOPE [None]
  - URINARY TRACT INFECTION [None]
  - VASCULAR RESISTANCE SYSTEMIC INCREASED [None]
  - VISUAL IMPAIRMENT [None]
  - VOMITING [None]
  - WEIGHT DECREASED [None]
